FAERS Safety Report 23542095 (Version 1)
Quarter: 2024Q1

REPORT INFORMATION
  Report Type: Spontaneous
  Country: US (occurrence: US)
  Receive Date: 20240220
  Receipt Date: 20240220
  Transmission Date: 20240410
  Serious: No
  Sender: FDA-Public Use
  Company Number: US-AUROBINDO-AUR-APL-2023-005715

PATIENT
  Age: 2 Year
  Sex: Male
  Weight: 14 kg

DRUGS (1)
  1. AMOXICILLIN [Suspect]
     Active Substance: AMOXICILLIN
     Indication: Product used for unknown indication
     Dosage: TWO TIMES A DAY
     Route: 048
     Dates: start: 20230131, end: 20230131

REACTIONS (2)
  - Accidental exposure to product by child [Not Recovered/Not Resolved]
  - Device safety feature issue [Not Recovered/Not Resolved]

NARRATIVE: CASE EVENT DATE: 20230131
